FAERS Safety Report 6186166-4 (Version None)
Quarter: 2009Q2

REPORT INFORMATION
  Report Type: 
  Country: None (occurrence: None)
  Receive Date: 20090507
  Receipt Date: 20090507
  Transmission Date: 20091009
  Serious: Yes (Hospitalization)
  Sender: FDA-Public Use
  Company Number: None

PATIENT
  Sex: Female
  Weight: 119.296 kg

DRUGS (2)
  1. VANCOMYCIN [Suspect]
     Indication: ABSCESS
     Dosage: 1250MG Q 12 HOURS IV DRIP
     Route: 041
     Dates: start: 20090424, end: 20090503
  2. VANCOMYCIN [Suspect]
     Indication: ULCER
     Dosage: 1250MG Q 12 HOURS IV DRIP
     Route: 041
     Dates: start: 20090424, end: 20090503

REACTIONS (7)
  - DIARRHOEA [None]
  - HEADACHE [None]
  - MALAISE [None]
  - NAUSEA [None]
  - PYREXIA [None]
  - TINNITUS [None]
  - VOMITING [None]
